FAERS Safety Report 4378696-2 (Version None)
Quarter: 2004Q2

REPORT INFORMATION
  Report Type: 
  Country: None (occurrence: None)
  Receive Date: 20040610
  Receipt Date: 20040601
  Transmission Date: 20050107
  Serious: Yes (Hospitalization)
  Sender: FDA-Public Use
  Company Number: PTWYE783826MAY04

PATIENT
  Age: 51 Year
  Sex: Female

DRUGS (5)
  1. RAPAMUNE [Suspect]
     Indication: PROPHYLAXIS AGAINST TRANSPLANT REJECTION
     Dosage: SEE IMAGE
     Route: 048
     Dates: start: 20031001, end: 20040518
  2. RAPAMUNE [Suspect]
     Indication: PROPHYLAXIS AGAINST TRANSPLANT REJECTION
     Dosage: SEE IMAGE
     Route: 048
     Dates: start: 20040522
  3. MYCOPHENOLATE MOFETIL (MYCOPHENOLATE MOFETIL) [Concomitant]
  4. PREDNISOLONE [Concomitant]
  5. PREDNISOLONE [Concomitant]

REACTIONS (12)
  - APHTHOUS STOMATITIS [None]
  - COMPLICATIONS OF TRANSPLANTED KIDNEY [None]
  - DEHYDRATION [None]
  - DIARRHOEA [None]
  - ESCHERICHIA URINARY TRACT INFECTION [None]
  - IMMUNOSUPPRESSANT DRUG LEVEL INCREASED [None]
  - KIDNEY TRANSPLANT REJECTION [None]
  - PROSTRATION [None]
  - RENAL INTERSTITIAL FIBROSIS [None]
  - RENAL TUBULAR ATROPHY [None]
  - RENAL TUBULAR NECROSIS [None]
  - TREMOR [None]
